FAERS Safety Report 8691984 (Version 12)
Quarter: 2014Q4

REPORT INFORMATION
  Report Type: Report from Study
  Country: JP (occurrence: JP)
  Receive Date: 20120730
  Receipt Date: 20141023
  Transmission Date: 20150529
  Serious: Yes (Hospitalization, Other)
  Sender: FDA-Public Use
  Company Number: JP-009507513-1207JPN009379

PATIENT
  Age: 50 Year
  Sex: Female
  Weight: 57 kg

DRUGS (23)
  1. PREDONINE [Suspect]
     Active Substance: PREDNISOLONE\PREDNISOLONE ACETATE\PREDNISOLONE SODIUM SUCCINATE
     Dosage: 20 MG, QD, FORMULATION: POR
     Route: 048
     Dates: start: 20120706, end: 20120707
  2. PREDONINE [Suspect]
     Active Substance: PREDNISOLONE\PREDNISOLONE ACETATE\PREDNISOLONE SODIUM SUCCINATE
     Dosage: 60 MG, QD, FORMULATION: POR
     Route: 048
     Dates: start: 20120803, end: 20120805
  3. KINDAVATE [Concomitant]
     Dosage: DAILY DOSE UNKNOWN, FORMULATION : OIT
     Route: 061
     Dates: start: 20120608
  4. ZYLORIC [Suspect]
     Active Substance: ALLOPURINOL
     Indication: ADVERSE EVENT
     Dosage: 200 MG, QD, FORMULATION: POR
     Route: 048
     Dates: start: 20120602, end: 20120808
  5. REBETOL [Suspect]
     Active Substance: RIBAVIRIN
     Indication: CHRONIC HEPATITIS C
     Dosage: 400 MG, QD
     Route: 048
     Dates: start: 20120530, end: 20120612
  6. PREDONINE [Suspect]
     Active Substance: PREDNISOLONE\PREDNISOLONE ACETATE\PREDNISOLONE SODIUM SUCCINATE
     Indication: ADVERSE EVENT
     Dosage: 20 MG, QD, FORMULATION: POR
     Route: 048
     Dates: start: 20120702, end: 20120703
  7. PREDONINE [Suspect]
     Active Substance: PREDNISOLONE\PREDNISOLONE ACETATE\PREDNISOLONE SODIUM SUCCINATE
     Dosage: 40 MG, QD, FORMULATION: POR
     Route: 048
     Dates: start: 20120720, end: 20120727
  8. PREDONINE [Suspect]
     Active Substance: PREDNISOLONE\PREDNISOLONE ACETATE\PREDNISOLONE SODIUM SUCCINATE
     Dosage: 30 MG, QD, FORMULATION: POR
     Route: 048
     Dates: start: 20120903
  9. GASTER [Concomitant]
     Active Substance: FAMOTIDINE
     Indication: PROPHYLAXIS
     Dosage: 40 MG, QD,FORMULATION:POR
     Route: 048
     Dates: start: 20120702, end: 20120707
  10. ALLEGRA [Concomitant]
     Active Substance: FEXOFENADINE HYDROCHLORIDE
     Dosage: 120 MG, QD,
     Route: 048
     Dates: start: 20120607
  11. CRAVIT [Concomitant]
     Active Substance: LEVOFLOXACIN
     Dosage: DAILY DOSE UNKNOWN, PROPERLY/DAY
     Route: 031
     Dates: start: 20120725
  12. PREDONINE [Suspect]
     Active Substance: PREDNISOLONE\PREDNISOLONE ACETATE\PREDNISOLONE SODIUM SUCCINATE
     Dosage: 10 MG, QD, FORMULATION: POR
     Route: 048
     Dates: start: 20120704, end: 20120705
  13. PREDONINE [Suspect]
     Active Substance: PREDNISOLONE\PREDNISOLONE ACETATE\PREDNISOLONE SODIUM SUCCINATE
     Dosage: 60 MG, QD, FORMULATION: POR
     Route: 048
     Dates: start: 20120728, end: 20120730
  14. REBETOL [Suspect]
     Active Substance: RIBAVIRIN
     Dosage: 200 MG, QD
     Route: 048
     Dates: start: 20120613, end: 20120707
  15. PREDONINE [Suspect]
     Active Substance: PREDNISOLONE\PREDNISOLONE ACETATE\PREDNISOLONE SODIUM SUCCINATE
     Dosage: 60 MG, QD, FORMULATION: POR
     Route: 048
     Dates: start: 20120708, end: 20120709
  16. PREDONINE [Suspect]
     Active Substance: PREDNISOLONE\PREDNISOLONE ACETATE\PREDNISOLONE SODIUM SUCCINATE
     Dosage: 50 MG, QD, FORMULATION: POR
     Route: 048
     Dates: start: 20120710, end: 20120719
  17. PREDONINE [Suspect]
     Active Substance: PREDNISOLONE\PREDNISOLONE ACETATE\PREDNISOLONE SODIUM SUCCINATE
     Dosage: 50 MG, QD, FORMULATION: POR
     Route: 048
     Dates: start: 20120825, end: 20120827
  18. PREDONINE [Suspect]
     Active Substance: PREDNISOLONE\PREDNISOLONE ACETATE\PREDNISOLONE SODIUM SUCCINATE
     Dosage: 40 MG, QD, FORMULATION: POR
     Route: 048
     Dates: start: 20120828, end: 20120902
  19. ANHIBA [Concomitant]
     Active Substance: ACETAMINOPHEN
     Dosage: 200 MG, QD
     Route: 054
     Dates: start: 20120627
  20. AZUNOL (SODIUM GUALENATE) [Concomitant]
     Dosage: PROPERLY/DAY, AS NEEDED, DAILY DOSE UNKNOWN, FORMULATION : MWH
     Route: 049
     Dates: start: 20120720
  21. PEGINTRON [Suspect]
     Active Substance: PEGINTERFERON ALFA-2B
     Indication: CHRONIC HEPATITIS C
     Dosage: 1.4 MICROGRAM PER KILOGRAM, QW (ALSO REPORTED AS DAILY DOSE UNKNOWN)
     Route: 058
     Dates: start: 20120530, end: 20120704
  22. TELAVIC [Suspect]
     Active Substance: TELAPREVIR
     Indication: CHRONIC HEPATITIS C
     Dosage: 1500 MG, QD
     Route: 048
     Dates: start: 20120530, end: 20120707
  23. DERMOVATE [Concomitant]
     Active Substance: CLOBETASOL
     Dosage: DAILY DOSE UNKNOWN, PROPERLY/DAY, AS NEEDED, FORMULATION : OIT
     Route: 061
     Dates: start: 20120604

REACTIONS (2)
  - Toxic epidermal necrolysis [Recovering/Resolving]
  - Rash [Recovering/Resolving]

NARRATIVE: CASE EVENT DATE: 20120627
